FAERS Safety Report 8516954 (Version 2)
Quarter: 2012Q4

REPORT INFORMATION
  Report Type: 
  Country: US (occurrence: US)
  Receive Date: 20120417
  Receipt Date: 20121018
  Transmission Date: 20130627
  Serious: Yes (Hospitalization)
  Sender: FDA-Public Use
  Company Number: US-BAYER-2012-035447

PATIENT
  Age: 22 Year
  Sex: Female
  Weight: 102.4 kg

DRUGS (3)
  1. YASMIN [Suspect]
     Indication: PREMENSTRUAL SYNDROME
     Dosage: UNK
     Dates: start: 200305, end: 20050319
  2. CLINDAMYCIN [Concomitant]
     Indication: CELLULITIS
     Dosage: 150 mg, TID
     Route: 048
     Dates: start: 20050317, end: 20050319
  3. DARVOCET [Concomitant]
     Indication: PAIN
     Dosage: UNK UNK, PRN
     Route: 048
     Dates: start: 20050317, end: 20050319

REACTIONS (8)
  - Deep vein thrombosis [None]
  - Pain [None]
  - General physical health deterioration [None]
  - Anxiety [None]
  - Limb discomfort [None]
  - Oedema peripheral [None]
  - Injury [None]
  - Emotional distress [None]
